FAERS Safety Report 6933010-0 (Version None)
Quarter: 2010Q3

REPORT INFORMATION
  Report Type: 
  Country: None (occurrence: None)
  Receive Date: 20100818
  Receipt Date: 20100818
  Transmission Date: 20110219
  Serious: Yes (Life-Threatening, Hospitalization)
  Sender: FDA-Public Use
  Company Number: None

PATIENT
  Sex: Female
  Weight: 80 kg

DRUGS (3)
  1. HUMIRA [Suspect]
     Indication: ANKYLOSING SPONDYLITIS
     Dosage: 40 MG/0.8 ML EVERY OTHER WEEK SUBCUTANEOUS
     Route: 058
  2. YASMIN [Concomitant]
  3. LEVOTHROID [Concomitant]

REACTIONS (13)
  - ACUTE DISSEMINATED ENCEPHALOMYELITIS [None]
  - DIZZINESS [None]
  - GAIT DISTURBANCE [None]
  - LETHARGY [None]
  - MOTOR DYSFUNCTION [None]
  - MULTIPLE SCLEROSIS [None]
  - MUSCULAR WEAKNESS [None]
  - MYALGIA [None]
  - PHARYNGEAL DISORDER [None]
  - PULMONARY EMBOLISM [None]
  - TREMOR [None]
  - URINARY RETENTION [None]
  - VOMITING [None]
